FAERS Safety Report 8934203 (Version 4)
Quarter: 2015Q3

REPORT INFORMATION
  Report Type: Spontaneous
  Country: US (occurrence: US)
  Receive Date: 20121129
  Receipt Date: 20150814
  Transmission Date: 20151125
  Serious: Yes (Life-Threatening, Hospitalization, Congenital Anomaly, Other)
  Sender: FDA-Public Use
  Company Number: US-ELI_LILLY_AND_COMPANY-US201211005890

PATIENT
  Age: 3 Month

DRUGS (1)
  1. PROZAC [Suspect]
     Active Substance: FLUOXETINE HYDROCHLORIDE
     Indication: DEPRESSION
     Dosage: 20 MG, DAILY, PRN
     Route: 064

REACTIONS (21)
  - Premature baby [Unknown]
  - Retinopathy of prematurity [Unknown]
  - Gastrooesophageal reflux disease [Unknown]
  - Supraventricular tachycardia [Unknown]
  - Pulmonary valve stenosis [Unknown]
  - Congenital cardiovascular anomaly [Not Recovered/Not Resolved]
  - Hydrocephalus [Unknown]
  - H1N1 influenza [Unknown]
  - Bronchiolitis [Unknown]
  - Respiratory distress [Unknown]
  - Craniosynostosis [Unknown]
  - Patent ductus arteriosus [Unknown]
  - Asthma [Unknown]
  - Apnoea neonatal [Unknown]
  - Atrial septal defect [Unknown]
  - Premature closure of cranial sutures [Unknown]
  - Low birth weight baby [Unknown]
  - Plagiocephaly [Recovered/Resolved]
  - Gastrointestinal disorder [Not Recovered/Not Resolved]
  - Foetal exposure during pregnancy [Recovered/Resolved]
  - Bronchopulmonary dysplasia [Unknown]

NARRATIVE: CASE EVENT DATE: 20091003
